FAERS Safety Report 8789889 (Version 2)
Quarter: 2012Q4

REPORT INFORMATION
  Report Type: 
  Country: AU (occurrence: AU)
  Receive Date: 20120917
  Receipt Date: 20121005
  Transmission Date: 20130627
  Serious: Yes (Other)
  Sender: FDA-Public Use
  Company Number: AU-PFIZER INC-2012222998

PATIENT
  Age: 49 Year
  Sex: Male

DRUGS (4)
  1. CARBOPLATIN [Suspect]
     Indication: LUNG ADENOCARCINOMA METASTATIC
     Dosage: 450 mg, UNK
     Route: 042
  2. PREDNISOLONE [Suspect]
  3. GEMCITABINE [Suspect]
     Indication: LUNG ADENOCARCINOMA METASTATIC
  4. PEMETREXED [Suspect]
     Indication: LUNG ADENOCARCINOMA METASTATIC
     Dosage: UNK

REACTIONS (3)
  - Pneumocystis jiroveci pneumonia [Recovered/Resolved]
  - Disease progression [Unknown]
  - Lung adenocarcinoma metastatic [Unknown]
